FAERS Safety Report 9048920 (Version 2)
Quarter: 2013Q1

REPORT INFORMATION
  Report Type: Spontaneous
  Country: US (occurrence: None)
  Receive Date: 20130116
  Receipt Date: 20130128
  Transmission Date: 20140127
  Serious: Yes (Other)
  Sender: FDA-Public Use
  Company Number: TPA2013A00658

PATIENT
  Age: 69 Year
  Sex: Female
  Weight: 79.38 kg

DRUGS (1)
  1. EDARBI [Suspect]
     Dosage: 45 DAYS PRIOER; 1 IN 1 D
     Route: 048

REACTIONS (1)
  - Angioedema [None]
